FAERS Safety Report 9275614 (Version 1)
Quarter: 2013Q1

REPORT INFORMATION
  Report Type: Spontaneous
  Country: JP (occurrence: None)
  Receive Date: 20121109
  Receipt Date: 20121109
  Transmission Date: 20140127
  Serious: Yes (Other)
  Sender: FDA-Public Use
  Company Number: 2012S1000132

PATIENT
  Age: 90 Year
  Sex: Male

DRUGS (2)
  1. CUBICIN (DAPTOMYCIN) [Suspect]
     Indication: STAPHYLOCOCCAL INFECTION
     Route: 041
     Dates: start: 20120130, end: 20120131
  2. WARFARIN (WARFARIN) [Suspect]
     Route: 048
     Dates: end: 20120126

REACTIONS (3)
  - Activated partial thromboplastin time prolonged [None]
  - Prothrombin time prolonged [None]
  - Drug interaction [None]
